FAERS Safety Report 24394333 (Version 1)
Quarter: 2024Q4

REPORT INFORMATION
  Report Type: Spontaneous
  Country: US (occurrence: US)
  Receive Date: 20241004
  Receipt Date: 20241004
  Transmission Date: 20250114
  Serious: Yes (Hospitalization)
  Sender: NOVITIUM PHARMA
  Company Number: US-NOVITIUMPHARMA-2024USNVP02046

PATIENT
  Age: 52 Year
  Sex: Male

DRUGS (16)
  1. SILDENAFIL CITRATE [Suspect]
     Active Substance: SILDENAFIL CITRATE
     Indication: Erectile dysfunction
  2. ACYCLOVIR [Suspect]
     Active Substance: ACYCLOVIR
     Indication: Iron deficiency anaemia
  3. POTASSIUM CHLORIDE [Suspect]
     Active Substance: POTASSIUM CHLORIDE
     Indication: Tobacco user
  4. FUROSEMIDE [Concomitant]
     Active Substance: FUROSEMIDE
     Indication: Hepatic cirrhosis
  5. FUROSEMIDE [Concomitant]
     Active Substance: FUROSEMIDE
     Indication: Hypertension
  6. PANTOPRAZOLE [Concomitant]
     Active Substance: PANTOPRAZOLE
     Indication: Gastrooesophageal reflux disease
  7. BUPROPION [Concomitant]
     Active Substance: BUPROPION
     Indication: Tobacco user
  8. TESTOSTERONE [Concomitant]
     Active Substance: TESTOSTERONE
     Indication: Erectile dysfunction
     Route: 030
  9. FERROUS SULFATE [Concomitant]
     Active Substance: FERROUS SULFATE
     Indication: Iron deficiency anaemia
  10. Dioctyl-sulfosuccinic-acid [Concomitant]
     Indication: Gastrooesophageal reflux disease
  11. CHOLECALCIFEROL [Concomitant]
     Active Substance: CHOLECALCIFEROL
     Indication: Vitamin D deficiency
     Dosage: 2000 UNITS DAILY
  12. GABAPENTIN [Concomitant]
     Active Substance: GABAPENTIN
     Indication: Chronic hepatitis C
  13. ALBUTEROL\IPRATROPIUM BROMIDE [Concomitant]
     Active Substance: ALBUTEROL\IPRATROPIUM BROMIDE
     Indication: Chronic hepatitis C
  14. ALBUTEROL [Concomitant]
     Active Substance: ALBUTEROL
     Indication: Chronic hepatitis C
  15. SOFOSBUVIR\VELPATASVIR [Concomitant]
     Active Substance: SOFOSBUVIR\VELPATASVIR
     Indication: Chronic hepatitis C
     Dosage: 400MG/100MG
  16. BUPRENORPHINE\NALOXONE [Concomitant]
     Active Substance: BUPRENORPHINE\NALOXONE
     Indication: Drug abuse
     Dosage: 8MG/2MG TWICE DAILY

REACTIONS (2)
  - Mental status changes [Unknown]
  - Drug interaction [Unknown]
